FAERS Safety Report 22171164 (Version 1)
Quarter: 2023Q2

REPORT INFORMATION
  Report Type: Spontaneous
  Country: ES (occurrence: ES)
  Receive Date: 20230404
  Receipt Date: 20230404
  Transmission Date: 20230722
  Serious: Yes (Hospitalization, Other)
  Sender: FDA-Public Use
  Company Number: ES-AstraZeneca-2022A006614

PATIENT
  Age: 80 Year
  Sex: Female

DRUGS (36)
  1. DOCETAXEL [Suspect]
     Active Substance: DOCETAXEL
     Indication: Gastric cancer
     Dosage: 50.0 MG/M2  50 MG/M2 ON DAYS 1 AND 15 50 MG/M2 ON DAYS 1 AND 15 EVERY FOUR WEEKS
     Route: 042
     Dates: start: 20211118, end: 20211118
  2. DOCETAXEL [Suspect]
     Active Substance: DOCETAXEL
     Indication: Oesophageal carcinoma
     Dosage: 50.0 MG/M2  50 MG/M2 ON DAYS 1 AND 15 50 MG/M2 ON DAYS 1 AND 15 EVERY FOUR WEEKS
     Route: 042
     Dates: start: 20211215, end: 20211215
  3. OXALIPLATIN [Suspect]
     Active Substance: OXALIPLATIN
     Indication: Gastric cancer
     Dosage: 85.0 MG/M2  85 MG/M2 ON DAYS 1 AND 15 85 MG/M2 ON DAYS 1 AND 15 EVERY FOUR WEEKS
     Route: 042
     Dates: start: 20211118, end: 20211118
  4. OXALIPLATIN [Suspect]
     Active Substance: OXALIPLATIN
     Indication: Oesophageal carcinoma
     Dosage: 85.0 MG/M2  85 MG/M2 ON DAYS 1 AND 15 85 MG/M2 ON DAYS 1 AND 15 EVERY FOUR WEEKS
     Route: 042
     Dates: start: 20211215, end: 20211215
  5. DURVALUMAB [Suspect]
     Active Substance: DURVALUMAB
     Indication: Oesophageal carcinoma
     Dosage: 1500 MILLIGRAM 4 WEEKS
     Route: 042
     Dates: start: 20211118, end: 20211118
  6. DURVALUMAB [Suspect]
     Active Substance: DURVALUMAB
     Indication: Gastric cancer
  7. FLUOROURACIL [Suspect]
     Active Substance: FLUOROURACIL
     Indication: Oesophageal carcinoma
     Dosage: 2600.0 MG/M2  2600 MG/M2 ON DAYS 1 AND 15 2600 MG/M2 ON DAYS 1 AND 15 EVERY FOUR WEEKS
     Route: 042
     Dates: start: 20211118, end: 20211119
  8. FLUOROURACIL [Suspect]
     Active Substance: FLUOROURACIL
     Indication: Gastric cancer
     Dosage: 2600.0 MG/M2  2600 MG/M2 ON DAYS 1 AND 15 2600 MG/M2 ON DAYS 1 AND 15 EVERY FOUR WEEKS
     Route: 042
     Dates: start: 20211215, end: 20211216
  9. APIXABAN [Concomitant]
     Active Substance: APIXABAN
     Indication: Cardiac fibrillation
     Dosage: 5 MILLIGRAM, TWO TIMES A DAY
     Route: 048
  10. BUDESONIDE [Concomitant]
     Active Substance: BUDESONIDE
     Indication: Dyspnoea
     Dosage: 200 MICROGRAM, TWO TIMES A DAY
     Dates: start: 20220104
  11. CODEINE [Concomitant]
     Active Substance: CODEINE
     Indication: Pain
     Dosage: 86 MILLIGRAM
     Route: 065
     Dates: start: 20220106
  12. COVID-19 vaccine [Concomitant]
     Indication: COVID-19
     Dosage: 1.0 UNKNOWN  ONCE/SINGLE ADMINISTRATION
     Route: 065
     Dates: start: 20211129
  13. DEXAMETHASONE [Concomitant]
     Active Substance: DEXAMETHASONE
     Indication: Hypersensitivity
     Dosage: 12 MILLIGRAM, CYCLICAL (  EVERY CYCLE THE PATIENT HAS CHEMO)
     Route: 042
     Dates: start: 20211118
  14. FERROGLOBE [Concomitant]
     Indication: Anaemia
     Dosage: 100 MILLIGRAM
     Route: 065
     Dates: start: 20220107
  15. LOPERAMIDE HYDROCHLORIDE [Concomitant]
     Active Substance: LOPERAMIDE HYDROCHLORIDE
     Indication: Diarrhoea
     Dosage: UNKNOWN
     Route: 048
     Dates: start: 20211224
  16. FUROSEMIDE [Concomitant]
     Active Substance: FUROSEMIDE
     Indication: Transfusion
     Dosage: 20 MILLIGRAM, 3 TIMES A DAY
     Route: 042
     Dates: start: 20220104
  17. FUROSEMIDE [Concomitant]
     Active Substance: FUROSEMIDE
     Indication: Oedema
     Dosage: 40 MILLIGRAM
     Route: 065
     Dates: start: 20220111
  18. HEMATIN [Concomitant]
     Active Substance: HEMATIN
     Indication: Anaemia
     Dosage: 1.0 BAG  ONCE/SINGLE ADMINISTRATION
     Route: 065
     Dates: start: 20220104
  19. HYDROCHLOROTHIAZIDE [Concomitant]
     Active Substance: HYDROCHLOROTHIAZIDE
     Indication: Hypertension
     Dosage: 25 MILLIGRAM, ONCE A DAY
     Route: 048
     Dates: start: 1980
  20. LEUCOVORIN [Concomitant]
     Active Substance: LEUCOVORIN
     Indication: Product used for unknown indication
     Dosage: 200.0 MG/M2  200 MG/M2 ON DAYS 1 AND 15 200 MG/M2 ON DAYS 1 AND 15 EVERY FOUR WEEKS
     Route: 042
     Dates: start: 20211118, end: 20211118
  21. LEUCOVORIN [Concomitant]
     Active Substance: LEUCOVORIN
     Dosage: 200.0 MG/M2  200 MG/M2 ON DAYS 1 AND 15 200 MG/M2 ON DAYS 1 AND 15 EVERY FOUR WEEKS
     Route: 042
     Dates: start: 20211215, end: 20211215
  22. LOSARTAN [Concomitant]
     Active Substance: LOSARTAN
     Indication: Hypertension
     Dosage: 50 MILLIGRAM
     Route: 065
     Dates: start: 20220110
  23. LATANOPROST [Concomitant]
     Active Substance: LATANOPROST
     Indication: Prophylaxis
     Dosage: 50 MICROGRAM, ONCE A DAY
     Dates: start: 2005
  24. NETUPITANT [Concomitant]
     Active Substance: NETUPITANT
     Indication: Vomiting
     Dosage: 300 MILLIGRAM, CYCLICAL (300.0 MG  EVERY CYCLE THE PATIENT HAS CHEMO)
     Route: 042
     Dates: start: 20211118
  25. OLMESARTAN MEDOXOMIL [Concomitant]
     Active Substance: OLMESARTAN MEDOXOMIL
     Indication: Hypertension
     Dosage: 40 MILLIGRAM, ONCE A DAY
     Route: 048
     Dates: start: 1980
  26. OMEPRAZOLE [Concomitant]
     Active Substance: OMEPRAZOLE
     Indication: Prophylaxis
     Dosage: 20 MILLIGRAM, TWO TIMES A DAY
     Route: 048
  27. PALONOSETRON [Concomitant]
     Active Substance: PALONOSETRON
     Indication: Vomiting
     Dosage: 0.5 MILLIGRAM, CYCLICAL (0.5 MG  EVERY CYCLE THE PATIENT HAS CHEMO)
     Route: 048
     Dates: start: 20211118
  28. ACETAMINOPHEN [Concomitant]
     Active Substance: ACETAMINOPHEN
     Indication: Pyrexia
     Dosage: 1 GRAM, AS NECESSARY
     Route: 042
     Dates: start: 20220104
  29. PREDNISONE [Concomitant]
     Active Substance: PREDNISONE
     Indication: Pruritus
     Dosage: 1 MILLIGRAM/KILOGRAM, ONCE A DAY
     Route: 048
     Dates: start: 20211201, end: 20211208
  30. PREDNISONE [Concomitant]
     Active Substance: PREDNISONE
     Dosage: 10 MILLIGRAM, ONCE A DAY
     Route: 048
     Dates: start: 20211209
  31. HUMAN RED BLOOD CELL [Concomitant]
     Active Substance: HUMAN RED BLOOD CELL
     Indication: Anaemia
     Dosage: 1.0 BAG  ONCE/SINGLE ADMINISTRATION
     Route: 042
     Dates: start: 20220104, end: 20220104
  32. HUMAN RED BLOOD CELL [Concomitant]
     Active Substance: HUMAN RED BLOOD CELL
     Dosage: 1.0 BAG  ONCE/SINGLE ADMINISTRATION
     Route: 065
     Dates: start: 20220105
  33. ALBUTEROL [Concomitant]
     Active Substance: ALBUTEROL
     Indication: Dyspnoea
     Dosage: 100 MICROGRAM AS REQUIRED
     Dates: start: 20220104
  34. FUROSEMIDE [Concomitant]
     Active Substance: FUROSEMIDE
     Indication: Oedema
     Dosage: UNK
     Route: 048
     Dates: start: 20220104
  35. SIMVASTATIN [Concomitant]
     Active Substance: SIMVASTATIN
     Indication: Dyslipidaemia
     Dosage: 20 MILLIGRAM, ONCE A DAY
     Route: 048
  36. VENOFER [Concomitant]
     Active Substance: IRON SUCROSE
     Indication: Anaemia
     Dosage: 100 MILLIGRAM EVERY 48 HOURS
     Route: 065
     Dates: start: 20220105

REACTIONS (1)
  - Cardiac failure [Recovered/Resolved]

NARRATIVE: CASE EVENT DATE: 20220104
